FAERS Safety Report 23707595 (Version 1)
Quarter: 2024Q2

REPORT INFORMATION
  Report Type: Spontaneous
  Country: DE (occurrence: DE)
  Receive Date: 20240404
  Receipt Date: 20240404
  Transmission Date: 20240715
  Serious: Yes (Other)
  Sender: FDA-Public Use
  Company Number: DE-TEVA-VS-3175034

PATIENT
  Age: 29 Year
  Sex: Female

DRUGS (2)
  1. MELPERONE [Suspect]
     Active Substance: MELPERONE
     Indication: Mental impairment
     Dosage: DOSAGE: 1.5 TABLETS IN THE EVENING
     Route: 048
  2. PANTOPRAZOLE [Suspect]
     Active Substance: PANTOPRAZOLE
     Indication: Gastrooesophageal reflux disease
     Dosage: 2 X 20 MG
     Route: 048
     Dates: start: 20240316

REACTIONS (8)
  - Mouth swelling [Recovering/Resolving]
  - Swollen tongue [Recovering/Resolving]
  - Drug hypersensitivity [Unknown]
  - Stomatitis [Recovering/Resolving]
  - Muscular weakness [Unknown]
  - Paraesthesia [Unknown]
  - Oral mucosal erythema [Recovering/Resolving]
  - Oral pain [Recovering/Resolving]

NARRATIVE: CASE EVENT DATE: 20240101
